FAERS Safety Report 9345106 (Version 3)
Quarter: 2014Q2

REPORT INFORMATION
  Report Type: Report from Study
  Country: JP (occurrence: JP)
  Receive Date: 20130612
  Receipt Date: 20140409
  Transmission Date: 20141212
  Serious: Yes (Hospitalization)
  Sender: FDA-Public Use
  Company Number: JP-UCBSA-088139

PATIENT
  Age: 72 Year
  Sex: Female
  Weight: 50.2 kg

DRUGS (7)
  1. CIMZIA [Suspect]
     Indication: RHEUMATOID ARTHRITIS
     Dosage: 200 MG SYRINGE
     Route: 058
     Dates: start: 20130319, end: 20130319
  2. PREDONINE [Suspect]
     Indication: RHEUMATOID ARTHRITIS
     Dosage: DAILY DOSE: 10 MG
     Route: 048
  3. LOXOPROFEN SODIUM HYDRATE [Concomitant]
     Dosage: DAILY DOSE: 120 MG
     Route: 048
  4. ACTONEL [Concomitant]
     Dosage: DAILY DOSE: 17.5 MG
     Route: 048
  5. CALCIUM L-ASPARTATE [Concomitant]
     Dosage: DAILY DOSE: 400 MG
     Route: 048
  6. TAKEPRON [Concomitant]
     Dosage: DAILY DOSE: 15 MG
     Route: 048
  7. AMLODIPINE OD [Concomitant]
     Dosage: DAILY DOSE: 5 MG
     Route: 048

REACTIONS (2)
  - Skin infection [Recovered/Resolved]
  - Cellulitis [Recovered/Resolved]
